FAERS Safety Report 15784875 (Version 1)
Quarter: 2019Q1

REPORT INFORMATION
  Report Type: Spontaneous
  Country: ES (occurrence: ES)
  Receive Date: 20190103
  Receipt Date: 20190103
  Transmission Date: 20190417
  Serious: Yes (Hospitalization)
  Sender: FDA-Public Use
  Company Number: ES-SUN PHARMACEUTICAL INDUSTRIES LTD-2018RR-195183

PATIENT
  Age: 34 Year
  Sex: Male

DRUGS (5)
  1. CALCIUM LEVOFOLINATE [Concomitant]
     Active Substance: LEVOLEUCOVORIN CALCIUM
     Indication: PRODUCT USED FOR UNKNOWN INDICATION
     Dosage: 7.5 MG/DAY ()
     Route: 048
  2. METHOTREXATE. [Concomitant]
     Active Substance: METHOTREXATE
     Indication: PRODUCT USED FOR UNKNOWN INDICATION
     Dosage: 10 MG, QW ()
     Route: 065
  3. SULFASALAZINE. [Suspect]
     Active Substance: SULFASALAZINE
     Indication: PRODUCT USED FOR UNKNOWN INDICATION
     Dosage: ()
     Route: 065
  4. DICLOFENAC [Suspect]
     Active Substance: DICLOFENAC
     Indication: SERONEGATIVE ARTHRITIS
     Dosage: 150 MG, PRN ()
     Route: 065
  5. DEFLAZACORT [Concomitant]
     Active Substance: DEFLAZACORT
     Indication: PRODUCT USED FOR UNKNOWN INDICATION
     Dosage: 7.5 MG/DAY ()
     Route: 048

REACTIONS (10)
  - Skin oedema [Recovering/Resolving]
  - Genital lesion [Recovering/Resolving]
  - Pemphigus [Unknown]
  - Skin necrosis [Unknown]
  - Epidermal necrosis [Recovering/Resolving]
  - Oral disorder [Recovering/Resolving]
  - Erythema [Recovering/Resolving]
  - Nikolsky^s sign [Recovering/Resolving]
  - Stevens-Johnson syndrome [Recovering/Resolving]
  - Gastrointestinal disorder [Unknown]
